FAERS Safety Report 8567829-X (Version None)
Quarter: 2012Q3

REPORT INFORMATION
  Report Type: 
  Country: None (occurrence: None)
  Receive Date: 20120803
  Receipt Date: 20120731
  Transmission Date: 20120928
  Serious: Yes (Hospitalization, Other)
  Sender: FDA-Public Use
  Company Number: CA-ROCHE-1084211

PATIENT
  Sex: Male
  Weight: 122.13 kg

DRUGS (13)
  1. MABTHERA [Suspect]
     Indication: IDIOPATHIC THROMBOCYTOPENIC PURPURA
     Route: 042
     Dates: start: 20120614
  2. METFORMIN HYDROCHLORIDE [Concomitant]
  3. INSULIN [Concomitant]
  4. ZOPICLONE [Concomitant]
  5. MAGNESIUM [Concomitant]
  6. ATENOLOL [Concomitant]
  7. CRESTOR [Concomitant]
  8. RAMIPRIL [Concomitant]
  9. TAMSULOSIN HCL [Concomitant]
  10. IRON [Concomitant]
  11. PREDNISONE [Concomitant]
  12. TYLENOL W/ CODEINE NO. 3 [Concomitant]
  13. DIPHENHYDRAMINE HCL [Concomitant]

REACTIONS (6)
  - IMMOBILE [None]
  - PAIN IN EXTREMITY [None]
  - ASTHENIA [None]
  - CONFUSIONAL STATE [None]
  - DELUSION [None]
  - UNEVALUABLE EVENT [None]
